FAERS Safety Report 4845821-6 (Version None)
Quarter: 2005Q4

REPORT INFORMATION
  Report Type: 
  Country: None (occurrence: None)
  Receive Date: 20051201
  Receipt Date: 20051123
  Transmission Date: 20060501
  Serious: Yes (Other)
  Sender: FDA-Public Use
  Company Number: 006139

PATIENT
  Age: 57 Year
  Sex: Female

DRUGS (5)
  1. MEDROXYPROGESTERONE ACETATE [Suspect]
     Dosage: ORAL
     Route: 048
     Dates: start: 19870101, end: 20010101
  2. PROVERA [Suspect]
     Dosage: ORAL
     Route: 048
     Dates: start: 19870101, end: 20010101
  3. ESTROPIPATE [Suspect]
     Dosage: ORAL
     Route: 048
     Dates: start: 19870101, end: 20010101
  4. CYCRIN [Suspect]
     Dosage: ORAL
     Route: 048
     Dates: start: 19870101, end: 20010101
  5. OGEN [Suspect]
     Dosage: ORAL
     Route: 048
     Dates: start: 19870101, end: 20010101

REACTIONS (3)
  - BREAST CANCER FEMALE [None]
  - OESTROGEN RECEPTOR ASSAY POSITIVE [None]
  - PROGESTERONE RECEPTOR ASSAY POSITIVE [None]
